FAERS Safety Report 7981124-9 (Version None)
Quarter: 2011Q4

REPORT INFORMATION
  Report Type: 
  Country: None (occurrence: None)
  Receive Date: 20111212
  Receipt Date: 20111130
  Transmission Date: 20120403
  Serious: Yes (Other)
  Sender: FDA-Public Use
  Company Number: 2011SP049594

PATIENT
  Age: 71 Year
  Sex: Female

DRUGS (2)
  1. PEG-INTRON [Suspect]
     Indication: HEPATITIS C
     Dosage: SC
     Route: 058
     Dates: start: 20090101, end: 20100101
  2. REBETOL [Suspect]
     Indication: HEPATITIS C
     Dosage: PO
     Route: 048
     Dates: start: 20090101, end: 20100101

REACTIONS (5)
  - MUSCULAR WEAKNESS [None]
  - GRIP STRENGTH DECREASED [None]
  - MUSCLE CONTRACTIONS INVOLUNTARY [None]
  - AMYOTROPHIC LATERAL SCLEROSIS [None]
  - DYSLALIA [None]
